FAERS Safety Report 20446083 (Version 2)
Quarter: 2022Q1

REPORT INFORMATION
  Report Type: Spontaneous
  Country: CA (occurrence: CA)
  Receive Date: 20220208
  Receipt Date: 20220214
  Transmission Date: 20220424
  Serious: Yes (Other)
  Sender: FDA-Public Use
  Company Number: CA-OTSUKA-2022_004561

PATIENT
  Age: 30 Year

DRUGS (1)
  1. ABILIFY MAINTENA [Suspect]
     Active Substance: ARIPIPRAZOLE
     Indication: Product used for unknown indication
     Dosage: EVERY 3 WEEKS
     Route: 065

REACTIONS (3)
  - Brain injury [Unknown]
  - Product dose omission issue [Unknown]
  - Product prescribing error [Unknown]
